FAERS Safety Report 21279341 (Version 2)
Quarter: 2022Q4

REPORT INFORMATION
  Report Type: Spontaneous
  Country: CO (occurrence: CO)
  Receive Date: 20220901
  Receipt Date: 20221003
  Transmission Date: 20230112
  Serious: Yes (Death, Hospitalization, Other)
  Sender: FDA-Public Use
  Company Number: CO-SA-SAC20220830000581

PATIENT
  Sex: Male

DRUGS (2)
  1. PRALUENT [Suspect]
     Active Substance: ALIROCUMAB
     Indication: Type IIa hyperlipidaemia
     Dosage: 75 MG, Q15D
     Route: 058
     Dates: start: 20200803
  2. PRALUENT [Suspect]
     Active Substance: ALIROCUMAB
     Indication: Cardiac disorder
     Dosage: 75 MG, Q15D
     Route: 058
     Dates: start: 20220616

REACTIONS (9)
  - Cardio-respiratory arrest [Fatal]
  - Respiratory arrest [Fatal]
  - Pyrexia [Unknown]
  - Endocarditis bacterial [Unknown]
  - Disorientation [Unknown]
  - Bacterial infection [Unknown]
  - Decreased appetite [Unknown]
  - Hypotension [Unknown]
  - Condition aggravated [Unknown]

NARRATIVE: CASE EVENT DATE: 20220801
